FAERS Safety Report 7061533-5 (Version None)
Quarter: 2010Q4

REPORT INFORMATION
  Report Type: 
  Country: None (occurrence: None)
  Receive Date: 20101026
  Receipt Date: 20101013
  Transmission Date: 20110411
  Serious: Yes (Hospitalization)
  Sender: FDA-Public Use
  Company Number: US-ELI_LILLY_AND_COMPANY-US201010003230

PATIENT
  Age: 81 Year
  Sex: Female

DRUGS (6)
  1. FORTEO [Suspect]
     Indication: OSTEOPOROSIS
     Dosage: 20 UG, DAILY (1/D)
     Route: 065
     Dates: start: 20090806, end: 20100823
  2. LEVOXYL [Concomitant]
  3. MULTI-VITAMIN [Concomitant]
  4. COZAAR [Concomitant]
  5. SIMVASTATIN [Concomitant]
  6. VIACTIV /00751501/ [Concomitant]

REACTIONS (5)
  - BACK PAIN [None]
  - BURNING SENSATION [None]
  - PAIN [None]
  - SPINAL DISORDER [None]
  - SPINAL FRACTURE [None]
